FAERS Safety Report 16030807 (Version 1)
Quarter: 2019Q1

REPORT INFORMATION
  Report Type: Spontaneous
  Country: US (occurrence: US)
  Receive Date: 20190304
  Receipt Date: 20190304
  Transmission Date: 20190418
  Serious: No
  Sender: FDA-Public Use
  Company Number: US-PFIZER INC-2019084642

PATIENT
  Age: 62 Year
  Sex: Female
  Weight: 69.4 kg

DRUGS (2)
  1. VSL#3 [Concomitant]
     Active Substance: PROBIOTICS NOS
     Indication: ABDOMINAL DISCOMFORT
     Dosage: UNK, DAILY (ONE (112.5 BILLION BACTERIA) CAPSULE BY MOUTH EVERY DAY)
     Route: 048
  2. RAPAMUNE [Suspect]
     Active Substance: SIROLIMUS
     Indication: LIVER TRANSPLANT
     Dosage: 2 MG, ALTERNATE DAY, (EVERY OTHER DAY)
     Route: 048

REACTIONS (5)
  - Product use issue [Unknown]
  - Product use in unapproved indication [Unknown]
  - Malaise [Unknown]
  - Gastric disorder [Unknown]
  - Diarrhoea [Unknown]
